FAERS Safety Report 6795295-3 (Version None)
Quarter: 2010Q2

REPORT INFORMATION
  Report Type: 
  Country: None (occurrence: None)
  Receive Date: 20100625
  Receipt Date: 20100622
  Transmission Date: 20101027
  Serious: Yes (Other)
  Sender: FDA-Public Use
  Company Number: GB-JNJCH-2010014793

PATIENT
  Age: 65 Year
  Sex: Male

DRUGS (4)
  1. SUDAFED 12 HOUR [Suspect]
     Indication: NASAL CONGESTION
     Dosage: TEXT:6DF 1/1 DAY
     Route: 048
     Dates: start: 20100610, end: 20100613
  2. NON DROWSY SUDAFED DECONGESTANT NASAL SPRAY [Suspect]
     Indication: NASAL CONGESTION
     Dosage: TEXT:6DF 1/1 DAY
     Route: 045
     Dates: start: 20100610, end: 20100613
  3. PSEUDOEPHEDRINE [Suspect]
     Indication: NASAL CONGESTION
     Dosage: TEXT:12DF 1/1 DAY
     Route: 045
     Dates: start: 20100610, end: 20100613
  4. IBUPROFEN [Concomitant]
     Indication: DRUG USE FOR UNKNOWN INDICATION
     Dosage: TEXT:UNKNOWN
     Route: 065

REACTIONS (1)
  - MUSCLE TWITCHING [None]
